FAERS Safety Report 6831337-4 (Version None)
Quarter: 2010Q3

REPORT INFORMATION
  Report Type: 
  Country: None (occurrence: None)
  Receive Date: 20100712
  Receipt Date: 20100706
  Transmission Date: 20110219
  Serious: Yes (Other)
  Sender: FDA-Public Use
  Company Number: FR-EISAI INC.-E2020-06986-SPO-FR

PATIENT
  Age: 79 Year
  Sex: Male
  Weight: 65 kg

DRUGS (1)
  1. ARICEPT [Suspect]
     Route: 048
     Dates: start: 20080101, end: 20100619

REACTIONS (6)
  - ABDOMINAL PAIN [None]
  - COGNITIVE DISORDER [None]
  - DECREASED APPETITE [None]
  - DIARRHOEA [None]
  - LIPASE INCREASED [None]
  - WEIGHT DECREASED [None]
